FAERS Safety Report 5765554-1 (Version None)
Quarter: 2008Q2

REPORT INFORMATION
  Report Type: 
  Country: None (occurrence: None)
  Receive Date: 20080611
  Receipt Date: 20080530
  Transmission Date: 20081010
  Serious: Yes (Other)
  Sender: FDA-Public Use
  Company Number: ES-GILEAD-2008-0016257

PATIENT
  Age: 38 Year
  Sex: Female

DRUGS (5)
  1. VIREAD [Suspect]
     Route: 048
     Dates: start: 20070726
  2. ISENTRESS [Concomitant]
     Route: 048
     Dates: start: 20070726
  3. DIDANOSINE [Concomitant]
     Route: 048
     Dates: start: 20070726
  4. PREZISTA [Concomitant]
     Route: 048
     Dates: start: 20070726
  5. NORVIR [Concomitant]
     Route: 048
     Dates: start: 20070726

REACTIONS (1)
  - ABORTION INDUCED [None]
